FAERS Safety Report 6387821-3 (Version None)
Quarter: 2009Q4

REPORT INFORMATION
  Report Type: 
  Country: None (occurrence: None)
  Receive Date: 20091005
  Receipt Date: 20090922
  Transmission Date: 20100525
  Serious: Yes (Hospitalization, Other)
  Sender: FDA-Public Use
  Company Number: US-ELI_LILLY_AND_COMPANY-US200909000317

PATIENT
  Sex: Female

DRUGS (4)
  1. FORTEO [Suspect]
     Indication: OSTEOPOROSIS
     Dosage: UNK, UNKNOWN
     Dates: start: 20070101
  2. FORTEO [Suspect]
     Dosage: UNK, UNK
  3. CALCIUM [Concomitant]
     Dosage: UNK, 3/D
  4. PREDNISONE [Concomitant]
     Dosage: 2.5 MG, QOD
     Dates: start: 20090301

REACTIONS (2)
  - FALL [None]
  - HIP FRACTURE [None]
